FAERS Safety Report 21607837 (Version 1)
Quarter: 2022Q4

REPORT INFORMATION
  Report Type: Spontaneous
  Country: US (occurrence: US)
  Receive Date: 20221117
  Receipt Date: 20221117
  Transmission Date: 20230113
  Serious: Yes (Hospitalization, Other)
  Sender: FDA-Public Use
  Company Number: US-Accord-285997

PATIENT
  Age: 16 Year
  Sex: Male
  Weight: 88 kg

DRUGS (9)
  1. DEXMEDETOMIDINE HYDROCHLORIDE [Suspect]
     Active Substance: DEXMEDETOMIDINE HYDROCHLORIDE
     Indication: General anaesthesia
     Dosage: MCG/KG/H:0.3, 0.3, 0.2, 0., TOTAL-56.32MCG, BOLUSES, INFUSION
  2. SEVOFLURANE [Concomitant]
     Active Substance: SEVOFLURANE
     Indication: General anaesthesia
     Dosage: MAC:0.2-0.6, 0.4-0.5, 0.2-0.3, 0.1, 03-05, 0.5-0.6, 0.6-0.8, 02-07
  3. PROPOFOL [Concomitant]
     Active Substance: PROPOFOL
     Indication: General anaesthesia
     Dosage: MCG/KG/MIN-150-175, 150-175, 150, 150, 150, 80-150., TOTAL-4784.56MG
  4. MIDAZOLAM [Concomitant]
     Active Substance: MIDAZOLAM
     Indication: General anaesthesia
     Dosage: TOTAL 2 MG
  5. ROCURONIUM [Concomitant]
     Active Substance: ROCURONIUM BROMIDE
     Indication: General anaesthesia
     Dosage: MG:50, 70., TOTAL-120MG.
  6. FENTANYL [Concomitant]
     Active Substance: FENTANYL
     Indication: General anaesthesia
     Dosage: MCG:50, 50., TOTAL-100MCG
  7. LIDOCAINE [Concomitant]
     Active Substance: LIDOCAINE
     Indication: General anaesthesia
     Dosage: TOTAL 100 MG
  8. REMIFENTANIL HYDROCHLORIDE [Concomitant]
     Active Substance: REMIFENTANIL HYDROCHLORIDE
     Indication: General anaesthesia
     Dosage: MC/KG/H:), 0.2, 0.25-0.3, 0.3, 0.3, 0.3, 0.3, 0.3, 0.3., TOTAL-10.3 MG.
  9. PROPOFOL [Concomitant]
     Active Substance: PROPOFOL
     Indication: General anaesthesia
     Dosage: MG:200, 100., TOTAL:300MG

REACTIONS (1)
  - Diabetes insipidus [Recovered/Resolved]
